FAERS Safety Report 11163172 (Version 1)
Quarter: 2015Q2

REPORT INFORMATION
  Report Type: Spontaneous
  Country: US (occurrence: US)
  Receive Date: 20150604
  Receipt Date: 20150604
  Transmission Date: 20150821
  Serious: No
  Sender: FDA-Public Use
  Company Number: US-SA-2015SA043841

PATIENT
  Sex: Female

DRUGS (2)
  1. LANTUS SOLOSTAR [Suspect]
     Active Substance: INSULIN GLARGINE
     Indication: DIABETES MELLITUS
     Dosage: DOSE:5 UNIT(S)
     Route: 065
     Dates: start: 20150327
  2. SOLOSTAR [Concomitant]
     Active Substance: DEVICE
     Dates: start: 20150327

REACTIONS (5)
  - Blood glucose increased [Unknown]
  - Diarrhoea [Unknown]
  - Conjunctivitis [Unknown]
  - Faeces discoloured [Unknown]
  - Nasopharyngitis [Unknown]

NARRATIVE: CASE EVENT DATE: 20150330
